FAERS Safety Report 4327475-0 (Version None)
Quarter: 2004Q1

REPORT INFORMATION
  Report Type: 
  Country: None (occurrence: None)
  Receive Date: 20040330
  Receipt Date: 20040330
  Transmission Date: 20041129
  Serious: Yes (Hospitalization)
  Sender: FDA-Public Use
  Company Number: None

PATIENT
  Age: 58 Year
  Sex: Male
  Weight: 60.3284 kg

DRUGS (4)
  1. GEMCITABINE 600 MG/M2 [Suspect]
     Indication: NON-SMALL CELL LUNG CANCER
     Dosage: 1128 MG IV
     Route: 042
     Dates: start: 20031229, end: 20040126
  2. RADIATION THERAPY 1.8 GY [Suspect]
     Indication: NON-SMALL CELL LUNG CANCER
     Dosage: 1.8 GY
     Dates: start: 20031229, end: 20040213
  3. NEXIUM [Concomitant]
  4. PREDNISONE [Concomitant]

REACTIONS (8)
  - DECREASED APPETITE [None]
  - PNEUMONITIS [None]
  - PRODUCTIVE COUGH [None]
  - PULMONARY NECROSIS [None]
  - PURULENCE [None]
  - PYREXIA [None]
  - SPUTUM DISCOLOURED [None]
  - WEIGHT DECREASED [None]
